FAERS Safety Report 26105273 (Version 1)
Quarter: 2025Q4

REPORT INFORMATION
  Report Type: Spontaneous
  Country: US (occurrence: US)
  Receive Date: 20251201
  Receipt Date: 20251201
  Transmission Date: 20260118
  Serious: No
  Sender: ROCHE
  Company Number: US-ROCHE-10000443985

PATIENT
  Sex: Male
  Weight: 42.18 kg

DRUGS (2)
  1. HEMLIBRA [Suspect]
     Active Substance: EMICIZUMAB-KXWH
     Indication: Factor VIII deficiency
     Dosage: STRENGTH 60MG/0.4ML
     Route: 058
     Dates: start: 20230322
  2. ALPHANATE Inj [Concomitant]

REACTIONS (1)
  - Weight increased [Unknown]
